FAERS Safety Report 12952852 (Version 3)
Quarter: 2017Q2

REPORT INFORMATION
  Report Type: Spontaneous
  Country: FR (occurrence: FR)
  Receive Date: 20161117
  Receipt Date: 20170424
  Transmission Date: 20170830
  Serious: Yes (Hospitalization)
  Sender: FDA-Public Use
  Company Number: FR-SA-2016SA202875

PATIENT
  Age: 37 Year
  Sex: Male

DRUGS (11)
  1. CANCIDAS [Suspect]
     Active Substance: CASPOFUNGIN ACETATE
     Indication: ASPERGILLUS INFECTION
     Route: 042
     Dates: start: 20161007
  2. INEXIUM [Suspect]
     Active Substance: ESOMEPRAZOLE
     Indication: HIATUS HERNIA
     Route: 048
     Dates: end: 20161001
  3. BACTRIM [Suspect]
     Active Substance: SULFAMETHOXAZOLE\TRIMETHOPRIM
     Indication: ANTIBIOTIC THERAPY
     Route: 048
     Dates: end: 20161001
  4. SERETIDE [Suspect]
     Active Substance: FLUTICASONE PROPIONATE\SALMETEROL XINAFOATE
     Indication: SARCOIDOSIS
     Route: 055
     Dates: end: 20161001
  5. FOLIC ACID. [Suspect]
     Active Substance: FOLIC ACID
     Indication: VITAMIN SUPPLEMENTATION
     Route: 048
  6. MECIR [Suspect]
     Active Substance: TAMSULOSIN HYDROCHLORIDE
     Indication: URINARY TRACT DISORDER
     Route: 048
     Dates: end: 20161001
  7. MINIRIN [Suspect]
     Active Substance: DESMOPRESSIN ACETATE
     Indication: URINARY TRACT DISORDER
     Route: 048
     Dates: end: 20161001
  8. CORTANCYL [Suspect]
     Active Substance: PREDNISONE
     Indication: SARCOIDOSIS
     Route: 048
     Dates: end: 20161001
  9. ARAVA [Suspect]
     Active Substance: LEFLUNOMIDE
     Indication: SARCOIDOSIS
     Route: 048
     Dates: end: 20161001
  10. CANCIDAS [Suspect]
     Active Substance: CASPOFUNGIN ACETATE
     Indication: ASPERGILLUS INFECTION
     Route: 042
     Dates: start: 201607, end: 20161001
  11. NOXAFIL [Suspect]
     Active Substance: POSACONAZOLE
     Indication: ASPERGILLUS INFECTION
     Route: 048
     Dates: end: 20161001

REACTIONS (6)
  - Seizure [Recovered/Resolved]
  - Amaurosis [Recovered/Resolved]
  - Craniocerebral injury [Recovered/Resolved]
  - Loss of consciousness [Recovered/Resolved]
  - Hemiplegia [Recovered/Resolved]
  - Paraesthesia [Recovered/Resolved]

NARRATIVE: CASE EVENT DATE: 20161001
